FAERS Safety Report 21324925 (Version 3)
Quarter: 2022Q3

REPORT INFORMATION
  Report Type: Spontaneous
  Country: JP (occurrence: JP)
  Receive Date: 20220912
  Receipt Date: 20220923
  Transmission Date: 20221026
  Serious: Yes (Hospitalization)
  Sender: FDA-Public Use
  Company Number: JP-2022-0382

PATIENT
  Age: 80 Year
  Sex: Male

DRUGS (4)
  1. BENDAMUSTINE HYDROCHLORIDE [Suspect]
     Active Substance: BENDAMUSTINE HYDROCHLORIDE
     Indication: Follicular lymphoma
     Dosage: 160 MG, CYCLE 1 GB THERAPY
     Route: 042
     Dates: start: 20220727
  2. BENDAMUSTINE HYDROCHLORIDE [Suspect]
     Active Substance: BENDAMUSTINE HYDROCHLORIDE
     Dosage: 160 MG, CYCLE 2 GB THERAPY
     Route: 042
     Dates: start: 20220824
  3. GAZYVA [Concomitant]
     Active Substance: OBINUTUZUMAB
     Indication: Follicular lymphoma
     Dosage: 1000 MG, CYCLE 1 GB THERAPY
     Route: 042
     Dates: start: 20220727
  4. GAZYVA [Concomitant]
     Active Substance: OBINUTUZUMAB
     Dosage: 1000 MG, CYCLE 2 GB THERAPY
     Route: 042
     Dates: start: 20220824

REACTIONS (1)
  - Electrocardiogram QT prolonged [Recovering/Resolving]

NARRATIVE: CASE EVENT DATE: 20220823
